FAERS Safety Report 11309716 (Version 2)
Quarter: 2018Q3

REPORT INFORMATION
  Report Type: Spontaneous
  Country: US (occurrence: US)
  Receive Date: 20150724
  Receipt Date: 20180813
  Transmission Date: 20181010
  Serious: Yes (Other)
  Sender: FDA-Public Use
  Company Number: US-LUNDBECK-DKLU2001749

PATIENT
  Age: 42 Year
  Sex: Male

DRUGS (2)
  1. SABRIL [Suspect]
     Active Substance: VIGABATRIN
     Indication: PARTIAL SEIZURES
  2. SABRIL [Suspect]
     Active Substance: VIGABATRIN
     Indication: TEMPORAL LOBE EPILEPSY
     Route: 048
     Dates: start: 20141231

REACTIONS (4)
  - Visual impairment [Unknown]
  - Sluggishness [Unknown]
  - Metamorphopsia [Unknown]
  - Balance disorder [Unknown]

NARRATIVE: CASE EVENT DATE: 20180806
